FAERS Safety Report 6611280-6 (Version None)
Quarter: 2010Q1

REPORT INFORMATION
  Report Type: 
  Country: None (occurrence: None)
  Receive Date: 20100301
  Receipt Date: 20100301
  Transmission Date: 20100710
  Serious: Yes (Other)
  Sender: FDA-Public Use
  Company Number: None

PATIENT
  Sex: Male
  Weight: 79.3795 kg

DRUGS (8)
  1. ADDERALL 30 [Suspect]
     Indication: MEMORY IMPAIRMENT
     Dosage: 20MG 2X/D ORAL
     Route: 048
  2. ATIVAN [Concomitant]
  3. AMBIEN [Concomitant]
  4. BENADRYL [Concomitant]
  5. FLOMAX [Concomitant]
  6. OXYBUTINEN [Concomitant]
  7. FLEXERIL [Concomitant]
  8. TESTOSTERONE PATCH [Concomitant]

REACTIONS (4)
  - AMPHETAMINES POSITIVE [None]
  - GASTRIC HAEMORRHAGE [None]
  - MUSCLE SPASMS [None]
  - TENDON RUPTURE [None]
